FAERS Safety Report 4313499-6 (Version None)
Quarter: 2004Q1

REPORT INFORMATION
  Report Type: 
  Country: None (occurrence: None)
  Receive Date: 20040308
  Receipt Date: 20040303
  Transmission Date: 20041129
  Serious: Yes (Other)
  Sender: FDA-Public Use
  Company Number: US-ROCHE-360477

PATIENT
  Age: 39 Year
  Sex: Male
  Weight: 69.9 kg

DRUGS (1)
  1. FUZEON [Suspect]
     Indication: HIV INFECTION
     Route: 058
     Dates: start: 20031111, end: 20040220

REACTIONS (2)
  - URTICARIA [None]
  - URTICARIA GENERALISED [None]
